FAERS Safety Report 8187908-9 (Version None)
Quarter: 2012Q1

REPORT INFORMATION
  Report Type: 
  Country: None (occurrence: None)
  Receive Date: 20120306
  Receipt Date: 20110624
  Transmission Date: 20120608
  Serious: Yes (Other)
  Sender: FDA-Public Use
  Company Number: US-GLAXOSMITHKLINE-A0935936A

PATIENT
  Age: 54 Year
  Sex: Male

DRUGS (1)
  1. AVANDIA [Suspect]
     Indication: DIABETES MELLITUS
     Dosage: 4MG PER DAY
     Route: 048
     Dates: start: 19990101, end: 20080101

REACTIONS (11)
  - PAIN IN EXTREMITY [None]
  - JOINT SWELLING [None]
  - MUSCULOSKELETAL DISCOMFORT [None]
  - MYALGIA [None]
  - LUNG DISORDER [None]
  - BLOOD PRESSURE [None]
  - WEIGHT INCREASED [None]
  - BACK PAIN [None]
  - HYPERHIDROSIS [None]
  - CARDIAC FAILURE CONGESTIVE [None]
  - NERVE INJURY [None]
